FAERS Safety Report 4595232-6 (Version None)
Quarter: 2005Q1

REPORT INFORMATION
  Report Type: 
  Country: None (occurrence: None)
  Receive Date: 20050223
  Receipt Date: 20050216
  Transmission Date: 20050727
  Serious: Yes (Other)
  Sender: FDA-Public Use
  Company Number: 200416120BCC

PATIENT
  Age: 16 Year
  Sex: Female
  Weight: 58.9676 kg

DRUGS (1)
  1. MIDOL [Suspect]
     Indication: INTENTIONAL MISUSE
     Dosage: 6000 MG, ONCE, ORAL
     Route: 048
     Dates: start: 20041217

REACTIONS (6)
  - ABNORMAL BEHAVIOUR [None]
  - BLOOD POTASSIUM DECREASED [None]
  - FEELING JITTERY [None]
  - HEART RATE INCREASED [None]
  - INTENTIONAL MISUSE [None]
  - NAUSEA [None]
